FAERS Safety Report 16445832 (Version 1)
Quarter: 2019Q2

REPORT INFORMATION
  Report Type: Other
  Country: IT (occurrence: IT)
  Receive Date: 20190618
  Receipt Date: 20190618
  Transmission Date: 20190711
  Serious: Yes (Hospitalization)
  Sender: FDA-Public Use
  Company Number: IT-SERVIER-S19006079

PATIENT

DRUGS (17)
  1. TN UNSPECIFIED [METHOTREXATE] [Suspect]
     Active Substance: METHOTREXATE
     Indication: ACUTE LYMPHOCYTIC LEUKAEMIA
     Dosage: 1.75 MG, CYCLICAL
     Route: 042
     Dates: start: 20181129, end: 20181204
  2. ONCASPAR [Suspect]
     Active Substance: PEGASPARGASE
     Indication: ACUTE LYMPHOCYTIC LEUKAEMIA
     Dosage: 2925 KIU, CYCLICAL
     Route: 042
     Dates: start: 20181204, end: 20181226
  3. MYELOSTIM [Suspect]
     Active Substance: LENOGRASTIM
     Dosage: 0.5 DF, QD
     Route: 058
     Dates: start: 20181209, end: 20181210
  4. ENDOXAN [Suspect]
     Active Substance: CYCLOPHOSPHAMIDE
     Indication: ACUTE LYMPHOCYTIC LEUKAEMIA
     Dosage: 468 MG, CYCLICAL
     Route: 042
     Dates: start: 20181201, end: 20181202
  5. UROMITEXAN [Suspect]
     Active Substance: MESNA
     Dosage: 164 MG, UNKNOWN
     Route: 042
  6. ENDOXAN [Suspect]
     Active Substance: CYCLOPHOSPHAMIDE
     Dosage: 234 MG, CYCLICAL
     Route: 042
     Dates: start: 20181130, end: 20181130
  7. MYELOSTIM [Suspect]
     Active Substance: LENOGRASTIM
     Indication: APLASIA
     Dosage: 0.5 DF, QD
     Route: 042
     Dates: start: 20181211, end: 20181215
  8. FLEBOCORTID [Concomitant]
     Active Substance: HYDROCORTISONE SODIUM SUCCINATE
     Indication: PREMEDICATION
     Dosage: 150 MG TOTAL
     Route: 042
  9. TRIMETON [Concomitant]
     Active Substance: CHLORPHENIRAMINE MALEATE
     Indication: PREMEDICATION
     Dosage: 7.5 MG, TOTAL
     Route: 042
  10. DILATREND [Concomitant]
     Active Substance: CARVEDILOL
     Indication: PRODUCT USED FOR UNKNOWN INDICATION
     Dosage: 3.12 MG, QD
     Route: 048
  11. BACTRIM [Concomitant]
     Active Substance: SULFAMETHOXAZOLE\TRIMETHOPRIM
     Indication: PRODUCT USED FOR UNKNOWN INDICATION
     Dosage: 2 DF, ONE DOSE
     Route: 048
  12. TN UNSPECIFIED [METHOTREXATE] [Suspect]
     Active Substance: METHOTREXATE
     Dosage: 12 MG, CYCLICAL
     Route: 037
     Dates: start: 20181115, end: 20181129
  13. UROMITEXAN [Suspect]
     Active Substance: MESNA
     Indication: ACUTE LYMPHOCYTIC LEUKAEMIA
     Dosage: 492 MG, CYCLICAL
     Route: 042
     Dates: start: 20181201, end: 20181202
  14. TN UNSPECIFIED [METHOTREXATE] [Suspect]
     Active Substance: METHOTREXATE
     Indication: ACUTE LYMPHOCYTIC LEUKAEMIA
     Dosage: 5850 MG, CYCLICAL
     Route: 042
     Dates: start: 20181115, end: 20181221
  15. ANTRA [Suspect]
     Active Substance: OMEPRAZOLE
     Indication: PRODUCT USED FOR UNKNOWN INDICATION
     Dosage: 40 MG, QD
     Route: 042
  16. ANTITROMBINA III [Concomitant]
     Indication: PRODUCT USED FOR UNKNOWN INDICATION
     Dosage: 500 IU, UNKNOWN
     Route: 065
  17. DEBRIDAT [Concomitant]
     Active Substance: TRIMEBUTINE MALEATE
     Indication: PRODUCT USED FOR UNKNOWN INDICATION
     Dosage: 0.5 DF, QD
     Route: 042
     Dates: start: 20181207

REACTIONS (3)
  - Mucosal inflammation [Recovered/Resolved]
  - Bone pain [Recovered/Resolved]
  - Salivary hypersecretion [Recovered/Resolved]

NARRATIVE: CASE EVENT DATE: 20181211
